FAERS Safety Report 6207140-5 (Version None)
Quarter: 2009Q2

REPORT INFORMATION
  Report Type: 
  Country: None (occurrence: None)
  Receive Date: 20090528
  Receipt Date: 20090519
  Transmission Date: 20091009
  Serious: Yes (Hospitalization, Other)
  Sender: FDA-Public Use
  Company Number: US-MERCK-0706USA03737

PATIENT
  Age: 56 Year
  Sex: Female
  Weight: 57 kg

DRUGS (3)
  1. FOSAMAX [Suspect]
     Indication: OSTEOPOROSIS
     Route: 048
     Dates: start: 19970101, end: 20060101
  2. FOSAMAX [Suspect]
     Indication: OSTEOPENIA
     Route: 048
     Dates: start: 19970101, end: 20060101
  3. SYNTHROID [Concomitant]
     Indication: THYROIDITIS
     Route: 065
     Dates: start: 19870101

REACTIONS (22)
  - ARTHRITIS INFECTIVE [None]
  - ARTHROPATHY [None]
  - CHEST PAIN [None]
  - HYDRONEPHROSIS [None]
  - HYPERSENSITIVITY [None]
  - IMPAIRED HEALING [None]
  - INFECTION [None]
  - JOINT EFFUSION [None]
  - LIPOMA [None]
  - NEPHROLITHIASIS [None]
  - ORAL INFECTION [None]
  - OSTEOMYELITIS [None]
  - OSTEONECROSIS [None]
  - PAIN [None]
  - PARATHYROID TUMOUR BENIGN [None]
  - TEMPOROMANDIBULAR JOINT SYNDROME [None]
  - THYROID CANCER [None]
  - THYROID NEOPLASM [None]
  - TOOTH LOSS [None]
  - URINARY TRACT INFECTION [None]
  - VERTIGO [None]
  - WEIGHT INCREASED [None]
